FAERS Safety Report 26013477 (Version 3)
Quarter: 2025Q4

REPORT INFORMATION
  Report Type: Spontaneous
  Country: US (occurrence: US)
  Receive Date: 20251107
  Receipt Date: 20251216
  Transmission Date: 20260118
  Serious: Yes (Life-Threatening, Disabling)
  Sender: PFIZER
  Company Number: US-PFIZER INC-PV202500130336

PATIENT
  Sex: Female
  Weight: 81.633 kg

DRUGS (5)
  1. DEPO-PROVERA [Suspect]
     Active Substance: MEDROXYPROGESTERONE ACETATE
     Indication: Migraine
     Dosage: UNK, EVERY 3 MONTHS
     Route: 030
     Dates: start: 20090301, end: 20140106
  2. DEPO-PROVERA [Suspect]
     Active Substance: MEDROXYPROGESTERONE ACETATE
     Indication: Menstrual disorder
  3. PIROXICAM [Concomitant]
     Active Substance: PIROXICAM
     Indication: Anxiety
     Dosage: 20 MG, DAILY
  4. PIROXICAM [Concomitant]
     Active Substance: PIROXICAM
     Indication: Depression
  5. XANAX [Concomitant]
     Active Substance: ALPRAZOLAM
     Indication: Anxiety
     Dosage: 0.5 MG, AS NEEDED

REACTIONS (8)
  - Magnetic resonance imaging abnormal [Recovered/Resolved with Sequelae]
  - Quality of life decreased [Recovered/Resolved with Sequelae]
  - Weight increased [Unknown]
  - Hormone level abnormal [Unknown]
  - Blood pressure increased [Unknown]
  - Impaired work ability [Unknown]
  - Pain [Unknown]
  - Off label use [Unknown]

NARRATIVE: CASE EVENT DATE: 20090301
